FAERS Safety Report 8047442-3 (Version None)
Quarter: 2012Q1

REPORT INFORMATION
  Report Type: 
  Country: None (occurrence: None)
  Receive Date: 20120116
  Receipt Date: 20120106
  Transmission Date: 20120608
  Serious: Yes (Hospitalization)
  Sender: FDA-Public Use
  Company Number: SI-JNJFOC-20110902411

PATIENT
  Sex: Male
  Weight: 110 kg

DRUGS (4)
  1. INFLIXIMAB, RECOMBINANT [Suspect]
     Route: 042
     Dates: start: 20110511
  2. INFLIXIMAB, RECOMBINANT [Suspect]
     Indication: PSORIASIS
     Route: 042
     Dates: start: 20010427
  3. CORTICOSTEROIDS [Concomitant]
     Route: 061
  4. NOVOLOG MIX 70/30 [Concomitant]

REACTIONS (1)
  - MUSCLE DISORDER [None]
